FAERS Safety Report 5716945-6 (Version None)
Quarter: 2008Q2

REPORT INFORMATION
  Report Type: 
  Country: None (occurrence: None)
  Receive Date: 20080422
  Receipt Date: 20080407
  Transmission Date: 20081010
  Serious: Yes (Death, Hospitalization)
  Sender: FDA-Public Use
  Company Number: DSA_31702_2008

PATIENT
  Age: 64 Year
  Sex: Male

DRUGS (5)
  1. ENALAPRIL MALEATE [Suspect]
     Indication: ESSENTIAL HYPERTENSION
     Dosage: DF
  2. DETRUSITOL /01350202/ [Concomitant]
  3. PAROXETINE HCL [Concomitant]
  4. ALLOPURINOL [Concomitant]
  5. CEFAMOX [Concomitant]

REACTIONS (10)
  - ANGIOEDEMA [None]
  - ARTHROPOD BITE [None]
  - BRADYCARDIA [None]
  - CARDIAC ARREST [None]
  - DYSPNOEA [None]
  - GENERAL PHYSICAL HEALTH DETERIORATION [None]
  - HYPERTONIA [None]
  - HYPOXIC ENCEPHALOPATHY [None]
  - PHARYNGITIS [None]
  - TACHYCARDIA [None]
